FAERS Safety Report 9369822 (Version 2)
Quarter: 2013Q3

REPORT INFORMATION
  Report Type: Report from Study
  Country: FR (occurrence: FR)
  Receive Date: 20130626
  Receipt Date: 20130704
  Transmission Date: 20140515
  Serious: Yes (Death)
  Sender: FDA-Public Use
  Company Number: FR-PFIZER INC-2012167534

PATIENT
  Age: 40 Year
  Sex: Male

DRUGS (2)
  1. CRIZOTINIB [Suspect]
     Indication: NON-SMALL CELL LUNG CANCER
     Dosage: 250 MG, 2X/DAY
     Route: 048
     Dates: start: 20120320, end: 20121120
  2. INNOHEP [Concomitant]
     Indication: DEEP VEIN THROMBOSIS
     Dosage: 10000 IU, 1X/DAY
     Route: 058
     Dates: start: 201111

REACTIONS (4)
  - Death [Fatal]
  - Pleural effusion [Unknown]
  - Transaminases increased [Recovered/Resolved]
  - Aspartate aminotransferase increased [Unknown]
